FAERS Safety Report 8257697-8 (Version None)
Quarter: 2012Q2

REPORT INFORMATION
  Report Type: 
  Country: None (occurrence: None)
  Receive Date: 20120403
  Receipt Date: 20120330
  Transmission Date: 20120825
  Serious: Yes (Hospitalization)
  Sender: FDA-Public Use
  Company Number: IE-AMGEN-IRLSP2012019969

PATIENT
  Age: 90 Year
  Sex: Male

DRUGS (4)
  1. LANSOPRAZOLE [Concomitant]
  2. PROLIA [Suspect]
     Indication: OSTEOPOROSIS
  3. INNOHEP [Concomitant]
  4. SINEMET [Concomitant]

REACTIONS (3)
  - PARAESTHESIA [None]
  - MUSCLE SPASMS [None]
  - HYPOCALCAEMIA [None]
